FAERS Safety Report 14508727 (Version 1)
Quarter: 2018Q1

REPORT INFORMATION
  Report Type: Spontaneous
  Country: DE (occurrence: DE)
  Receive Date: 20180209
  Receipt Date: 20180209
  Transmission Date: 20180509
  Serious: Yes (Hospitalization)
  Sender: FDA-Public Use
  Company Number: DE-MERCK KGAA-2041673

PATIENT
  Age: 79 Year
  Sex: Female

DRUGS (2)
  1. NOVOTHYROX [Suspect]
     Active Substance: LEVOTHYROXINE SODIUM
     Indication: GOITRE
     Dates: start: 1974
  2. NOVOTHYRAL [Suspect]
     Active Substance: LEVOTHYROXINE SODIUM\LIOTHYRONINE SODIUM
     Dates: start: 2016

REACTIONS (3)
  - Blood thyroid stimulating hormone increased [None]
  - Tumour marker increased [None]
  - Hypoaesthesia [None]

NARRATIVE: CASE EVENT DATE: 20171201
